FAERS Safety Report 23932119 (Version 1)
Quarter: 2024Q2

REPORT INFORMATION
  Report Type: Other
  Country: CA (occurrence: CA)
  Receive Date: 20240603
  Receipt Date: 20240603
  Transmission Date: 20240715
  Serious: Yes (Hospitalization, Other)
  Sender: FDA-Public Use
  Company Number: CA-PFIZER INC-202400181777

PATIENT
  Age: 51 Year
  Sex: Male

DRUGS (2)
  1. RITUXIMAB [Suspect]
     Active Substance: RITUXIMAB
     Indication: Giant cell myocarditis
     Dosage: UNK
     Route: 065
  2. ALEMTUZUMAB [Concomitant]
     Active Substance: ALEMTUZUMAB
     Indication: Giant cell myocarditis
     Dosage: UNK
     Route: 065

REACTIONS (14)
  - COVID-19 [Recovered/Resolved]
  - Cardiac failure chronic [Recovered/Resolved]
  - Cardiogenic shock [Recovered/Resolved]
  - Encephalopathy [Recovered/Resolved]
  - Failure to thrive [Recovered/Resolved]
  - Hypotension [Recovered/Resolved]
  - Lactic acidosis [Recovered/Resolved]
  - Left ventricular failure [Recovered/Resolved]
  - Myocardial fibrosis [Recovered/Resolved]
  - Performance status decreased [Recovered/Resolved]
  - Renal impairment [Recovered/Resolved]
  - Transplant dysfunction [Recovered/Resolved]
  - Drug effective for unapproved indication [Unknown]
  - Off label use [Unknown]
